FAERS Safety Report 14395340 (Version 1)
Quarter: 2018Q1

REPORT INFORMATION
  Report Type: Spontaneous
  Country: US (occurrence: US)
  Receive Date: 20180116
  Receipt Date: 20180116
  Transmission Date: 20180509
  Serious: No
  Sender: FDA-Public Use
  Company Number: US-ALLERGAN-1708271US

PATIENT
  Sex: Female
  Weight: 47.62 kg

DRUGS (1)
  1. BOTOX [Suspect]
     Active Substance: ONABOTULINUMTOXINA
     Indication: DROOLING
     Dosage: UNK, SINGLE
     Route: 030
     Dates: start: 20161121, end: 20161121

REACTIONS (4)
  - Skin exfoliation [Unknown]
  - Malaise [Unknown]
  - Heart rate increased [Unknown]
  - Off label use [Unknown]
